FAERS Safety Report 4517783-2 (Version None)
Quarter: 2004Q4

REPORT INFORMATION
  Report Type: 
  Country: None (occurrence: None)
  Receive Date: 20041203
  Receipt Date: 20040223
  Transmission Date: 20050328
  Serious: Yes (Hospitalization)
  Sender: FDA-Public Use
  Company Number: JP-ROCHE-359554

PATIENT
  Age: 34 Year
  Sex: Male

DRUGS (18)
  1. MYCOPHENOLATE MOFETIL [Suspect]
     Route: 048
     Dates: start: 20010727, end: 20011105
  2. MYCOPHENOLATE MOFETIL [Suspect]
     Route: 048
     Dates: start: 20010701, end: 20010722
  3. MYCOPHENOLATE MOFETIL [Suspect]
     Route: 048
     Dates: start: 20010723, end: 20010726
  4. MYCOPHENOLATE MOFETIL [Suspect]
     Route: 048
     Dates: start: 20011106, end: 20030504
  5. MYCOPHENOLATE MOFETIL [Suspect]
     Route: 048
     Dates: start: 20030504
  6. NEORAL [Suspect]
     Route: 048
     Dates: start: 20010613, end: 20020731
  7. NEORAL [Suspect]
     Route: 048
     Dates: start: 20020731, end: 20030702
  8. PREDONINE [Suspect]
     Route: 048
     Dates: start: 20010613, end: 20020731
  9. PREDONINE [Suspect]
     Route: 048
     Dates: start: 20020731, end: 20030702
  10. ADALAT CC [Concomitant]
     Route: 048
     Dates: start: 20010623, end: 20030702
  11. PERDIPINE [Concomitant]
     Route: 048
     Dates: start: 20010711, end: 20030702
  12. MAGNESIUM OXIDE [Concomitant]
     Route: 048
     Dates: start: 20010623, end: 20030702
  13. ALTAT [Concomitant]
     Route: 048
     Dates: start: 20011105, end: 20030702
  14. PRAVASTATIN [Concomitant]
     Route: 048
     Dates: start: 20011012, end: 20030702
  15. BAKTAR [Concomitant]
     Route: 048
     Dates: start: 20010924, end: 20030514
  16. FUNGIZONE [Concomitant]
     Route: 048
     Dates: start: 20010613, end: 20030514
  17. BLOPRESS [Concomitant]
     Route: 048
     Dates: start: 20011015, end: 20030702
  18. SELBEX [Concomitant]
     Route: 048
     Dates: start: 20020913, end: 20020919

REACTIONS (3)
  - BLOOD CREATININE INCREASED [None]
  - CYTOMEGALOVIRUS INFECTION [None]
  - GENITAL TRACT INFLAMMATION [None]
